FAERS Safety Report 26132971 (Version 3)
Quarter: 2025Q4

REPORT INFORMATION
  Report Type: Report from Study
  Country: EU (occurrence: EU)
  Receive Date: 20251209
  Receipt Date: 20251231
  Transmission Date: 20260118
  Serious: Yes (Life-Threatening, Hospitalization, Other)
  Sender: ABBVIE
  Company Number: EU-ABBVIE-6577685

PATIENT
  Age: 17 Year
  Sex: Male
  Weight: 52.5 kg

DRUGS (12)
  1. HUMIRA [Suspect]
     Active Substance: ADALIMUMAB
     Indication: Crohn^s disease
     Route: 058
     Dates: start: 20180823, end: 20180905
  2. HUMIRA [Suspect]
     Active Substance: ADALIMUMAB
     Route: 058
     Dates: start: 20180906, end: 20181030
  3. HUMIRA [Suspect]
     Active Substance: ADALIMUMAB
     Route: 058
     Dates: start: 20181031, end: 20190820
  4. HUMIRA [Suspect]
     Active Substance: ADALIMUMAB
     Route: 058
     Dates: start: 20190821, end: 20200303
  5. HUMIRA [Suspect]
     Active Substance: ADALIMUMAB
     Route: 058
     Dates: start: 20200304, end: 20200531
  6. HUMIRA [Suspect]
     Active Substance: ADALIMUMAB
     Route: 058
     Dates: start: 20200601, end: 20241024
  7. DIPROSALIC BETAMETASONA (DIPROPIONATO) [Concomitant]
     Indication: Psoriasis
     Dosage: TIME INTERVAL: AS NECESSARY: DOSE 1 DOSAGE FORM?ROA- TOPICAL
     Dates: start: 20191202
  8. ELIDEL 10 MG/G CREMA?PIMECROLIMUS [Concomitant]
     Indication: Psoriasis
     Dosage: TIME INTERVAL: AS NECESSARY: DOSE 1 DOSAGE FORM??ROA- TOPICAL
     Dates: start: 20200210
  9. AZATHIOPRINE [Suspect]
     Active Substance: AZATHIOPRINE
     Indication: Crohn^s disease
     Route: 065
     Dates: start: 20170810, end: 20170824
  10. AZATHIOPRINE [Suspect]
     Active Substance: AZATHIOPRINE
     Indication: Crohn^s disease
     Route: 065
     Dates: start: 20170825, end: 20190527
  11. ADALIMUMAB [Concomitant]
     Active Substance: ADALIMUMAB
     Indication: Crohn^s disease
     Route: 058
     Dates: start: 20241107
  12. METHYLPREDNISOLONE ACEPONATE [Concomitant]
     Active Substance: METHYLPREDNISOLONE ACEPONATE
     Indication: Psoriasis
     Dosage: TIME INTERVAL: AS NECESSARY: DOSE 1 DOSAGE FORM??ROA- TOPICAL
     Dates: start: 20191202

REACTIONS (1)
  - IgA nephropathy [Not Recovered/Not Resolved]

NARRATIVE: CASE EVENT DATE: 20250501
